FAERS Safety Report 16178647 (Version 1)
Quarter: 2019Q2

REPORT INFORMATION
  Report Type: Spontaneous
  Country: US (occurrence: US)
  Receive Date: 20190409
  Receipt Date: 20190409
  Transmission Date: 20190711
  Serious: Yes (Death, Life-Threatening, Hospitalization)
  Sender: FDA-Public Use
  Company Number: None

PATIENT
  Age: 73 Year
  Sex: Male
  Weight: 67 kg

DRUGS (1)
  1. DURVALUMAB. [Suspect]
     Active Substance: DURVALUMAB
     Indication: NON-SMALL CELL LUNG CANCER
     Dosage: ?          OTHER FREQUENCY:EVERY 2 WEEKS;?
     Route: 041

REACTIONS (6)
  - Liver function test increased [None]
  - Plasmapheresis [None]
  - Cardiac arrest [None]
  - Myasthenia gravis [None]
  - Respiratory depression [None]
  - Procedural complication [None]

NARRATIVE: CASE EVENT DATE: 20180519
